FAERS Safety Report 4370759-0 (Version None)
Quarter: 2004Q2

REPORT INFORMATION
  Report Type: 
  Country: None (occurrence: None)
  Receive Date: 20040601
  Receipt Date: 20040517
  Transmission Date: 20050107
  Serious: Yes (Death)
  Sender: FDA-Public Use
  Company Number: GBR-2004-0001072

PATIENT
  Age: 43 Year
  Sex: Female

DRUGS (7)
  1. OXYCONTIN [Suspect]
     Dosage: 5 MG, BID
     Dates: start: 20031107
  2. PARACETAMOL WITH CODEINE [Concomitant]
  3. FLUTICASONE PROPIONATE [Concomitant]
  4. ZOPLICONE (ZOPICLONE) [Concomitant]
  5. ALPRAZOLAM [Concomitant]
  6. NAPROXEN [Concomitant]
  7. VENTOLIN [Concomitant]

REACTIONS (2)
  - FALL [None]
  - SEDATION [None]
